FAERS Safety Report 18982246 (Version 2)
Quarter: 2021Q2

REPORT INFORMATION
  Report Type: Spontaneous
  Country: JP (occurrence: JP)
  Receive Date: 20210308
  Receipt Date: 20210406
  Transmission Date: 20210717
  Serious: Yes (Death, Hospitalization, Other)
  Sender: FDA-Public Use
  Company Number: JP-ELI_LILLY_AND_COMPANY-JP202103001324AA

PATIENT
  Age: 75 Year
  Sex: Female

DRUGS (2)
  1. GEMCITABINE HYDROCHLORIDE. [Suspect]
     Active Substance: GEMCITABINE HYDROCHLORIDE
     Indication: ADENOCARCINOMA
     Route: 041
  2. PACLITAXEL ALBUMIN [Suspect]
     Active Substance: PACLITAXEL
     Indication: ADENOCARCINOMA
     Route: 065

REACTIONS (7)
  - Pancytopenia [Unknown]
  - Posterior reversible encephalopathy syndrome [Not Recovered/Not Resolved]
  - Thrombotic microangiopathy [Fatal]
  - Neutropenic colitis [Unknown]
  - Febrile neutropenia [Unknown]
  - Cardiac failure [Fatal]
  - Hypertension [Unknown]
